FAERS Safety Report 14963481 (Version 1)
Quarter: 2018Q2

REPORT INFORMATION
  Report Type: Spontaneous
  Country: DK (occurrence: DK)
  Receive Date: 20180601
  Receipt Date: 20180601
  Transmission Date: 20180711
  Serious: Yes (Life-Threatening, Hospitalization, Disabling, Other)
  Sender: FDA-Public Use
  Company Number: DK-BRISTOL-MYERS SQUIBB COMPANY-BMS-2015-080826

PATIENT
  Age: 72 Year
  Sex: Male

DRUGS (6)
  1. ISOPTIN [Concomitant]
     Active Substance: VERAPAMIL HYDROCHLORIDE
     Indication: THROMBOSIS PROPHYLAXIS
     Dosage: 240 MG, DRUG INTERVAL DOSAGE UNIT NUMBER: 1DAY
     Route: 048
  2. ATORVASTATIN [Suspect]
     Active Substance: ATORVASTATIN
     Indication: HYPERCHOLESTEROLAEMIA
     Dosage: 20 MG, DRUG INTERVAL DOSAGE UNIT NUMBER: 1DAY
     Route: 065
     Dates: start: 20151105
  3. ELIQUIS [Suspect]
     Active Substance: APIXABAN
     Indication: ANTICOAGULANT THERAPY
     Dosage: STYRKE: 2,5 MG
     Route: 048
     Dates: start: 20151105, end: 20151111
  4. LOSARTAN + HIDROCLOROTIAZIDA       /01284801/ [Concomitant]
     Active Substance: HYDROCHLOROTHIAZIDE\LOSARTAN POTASSIUM
     Indication: HYPERTENSION
     Dosage: 1 DF, DRUG INTERVAL DOSAGE UNIT NUMBER: 1DAY
     Route: 048
     Dates: start: 20141121
  5. GABAPENTIN. [Concomitant]
     Active Substance: GABAPENTIN
     Indication: PRODUCT USED FOR UNKNOWN INDICATION
     Route: 065
  6. OXCARBAZEPIN [Concomitant]
     Active Substance: OXCARBAZEPINE
     Indication: PRODUCT USED FOR UNKNOWN INDICATION
     Dosage: UNK
     Route: 065

REACTIONS (12)
  - Visual impairment [Not Recovered/Not Resolved]
  - Aphasia [Recovered/Resolved]
  - Hemiparesis [Recovered/Resolved]
  - Gait disturbance [Recovered/Resolved]
  - Cognitive disorder [Not Recovered/Not Resolved]
  - Quadrantanopia [Not Recovered/Not Resolved]
  - Diplopia [Recovering/Resolving]
  - Haemorrhage intracranial [Recovered/Resolved with Sequelae]
  - Poor quality sleep [Recovered/Resolved]
  - Malaise [Recovered/Resolved]
  - Coordination abnormal [Recovered/Resolved]
  - Neurologic neglect syndrome [Recovering/Resolving]

NARRATIVE: CASE EVENT DATE: 20151109
